FAERS Safety Report 6477713-3 (Version None)
Quarter: 2009Q4

REPORT INFORMATION
  Report Type: 
  Country: None (occurrence: None)
  Receive Date: 20091207
  Receipt Date: 20091124
  Transmission Date: 20100525
  Serious: Yes (Other)
  Sender: FDA-Public Use
  Company Number: BR-PFIZER INC-2009258019

PATIENT
  Age: 61 Year
  Sex: Female
  Weight: 69 kg

DRUGS (5)
  1. XALATAN [Suspect]
     Indication: GLAUCOMA
     Dosage: 3 UG, 1X/DAY
     Route: 047
     Dates: start: 19990101
  2. PROPRANOLOL [Concomitant]
     Indication: TACHYCARDIA
     Dosage: UNK
     Dates: start: 20060101
  3. INSULIN [Concomitant]
     Indication: DIABETES MELLITUS
     Dosage: UNK
     Dates: start: 20080501
  4. HYDROCHLOROTHIAZIDE [Concomitant]
     Indication: HYPERTENSION
     Dosage: UNK
  5. ALPHAGAN [Concomitant]
     Indication: INTRAOCULAR PRESSURE TEST
     Dosage: UNK
     Dates: start: 19990101

REACTIONS (5)
  - EYE IRRITATION [None]
  - FALL [None]
  - LIGAMENT RUPTURE [None]
  - OCULAR HYPERAEMIA [None]
  - TACHYCARDIA [None]
